FAERS Safety Report 4370521-9 (Version None)
Quarter: 2004Q2

REPORT INFORMATION
  Report Type: 
  Country: None (occurrence: None)
  Receive Date: 20040601
  Receipt Date: 20031103
  Transmission Date: 20050107
  Serious: Yes (Hospitalization)
  Sender: FDA-Public Use
  Company Number: US053750

PATIENT
  Age: 71 Year
  Sex: Female
  Weight: 81.64 kg

DRUGS (1)
  1. ENBREL [Suspect]
     Indication: RHEUMATOID ARTHRITIS
     Dosage: TWICE WEEKLY, SC
     Route: 058
     Dates: start: 20010101

REACTIONS (6)
  - COUGH [None]
  - HYPERTENSION [None]
  - MYOCARDIAL INFARCTION [None]
  - PHARYNGOLARYNGEAL PAIN [None]
  - PYREXIA [None]
  - TINNITUS [None]
